FAERS Safety Report 5593668-8 (Version None)
Quarter: 2008Q1

REPORT INFORMATION
  Report Type: 
  Country: None (occurrence: None)
  Receive Date: 20080116
  Receipt Date: 20080111
  Transmission Date: 20080703
  Serious: Yes (Hospitalization, Other)
  Sender: FDA-Public Use
  Company Number: CA-ASTRAZENECA-2008UW00877

PATIENT
  Age: 86 Year
  Sex: Male

DRUGS (3)
  1. NEXIUM [Suspect]
     Indication: GASTROOESOPHAGEAL REFLUX DISEASE
     Route: 048
     Dates: start: 20050101
  2. ZINC [Concomitant]
     Indication: MACULAR DEGENERATION
     Route: 048
  3. TYLENOL [Concomitant]
     Indication: PAIN
     Route: 048

REACTIONS (2)
  - AMPUTATION [None]
  - SPINAL COLUMN STENOSIS [None]
